FAERS Safety Report 9034125 (Version 1)
Quarter: 2013Q1

REPORT INFORMATION
  Report Type: Spontaneous
  Country: US (occurrence: None)
  Receive Date: 20130116
  Receipt Date: 20130116
  Transmission Date: 20140127
  Serious: Yes (Hospitalization)
  Sender: FDA-Public Use
  Company Number: None

PATIENT
  Age: 82 Year
  Sex: Female
  Weight: 58.97 kg

DRUGS (1)
  1. WARFARIN [Suspect]
     Indication: ATRIAL FIBRILLATION
     Route: 048
     Dates: start: 20121105, end: 20121116

REACTIONS (6)
  - Haemoglobin decreased [None]
  - Pallor [None]
  - Asthenia [None]
  - Haematochezia [None]
  - Blood pressure diastolic decreased [None]
  - Medication error [None]
